FAERS Safety Report 17206054 (Version 3)
Quarter: 2020Q1

REPORT INFORMATION
  Report Type: Spontaneous
  Country: JP (occurrence: JP)
  Receive Date: 20191227
  Receipt Date: 20200320
  Transmission Date: 20200409
  Serious: Yes (Hospitalization)
  Sender: FDA-Public Use
  Company Number: JP-AMGEN-JPNSP2019215434

PATIENT
  Age: 65 Year
  Sex: Female

DRUGS (38)
  1. POLYFUL [Concomitant]
     Active Substance: CALCIUM POLYCARBOPHIL
     Indication: PRODUCT USED FOR UNKNOWN INDICATION
     Dosage: UNK, TID (AFTER EACH MEAL)
     Route: 048
  2. TOLEDOMIN [Concomitant]
     Active Substance: MILNACIPRAN HYDROCHLORIDE
     Indication: PRODUCT USED FOR UNKNOWN INDICATION
     Dosage: UNK, QD (AFTER BREAKFAST)
     Route: 048
  3. LOXOPROFEN NA [Concomitant]
     Active Substance: LOXOPROFEN SODIUM
     Indication: PAIN
     Dosage: UNK UNK, AS NECESSARY
     Route: 048
  4. ENDOXAN [CYCLOPHOSPHAMIDE] [Concomitant]
     Active Substance: CYCLOPHOSPHAMIDE
     Dosage: 735 MILLIGRAM
     Route: 041
     Dates: start: 20191115, end: 20191115
  5. G-LASTA [Suspect]
     Active Substance: PEGFILGRASTIM
     Indication: PRODUCT USED FOR UNKNOWN INDICATION
     Dosage: 3.6 MILLIGRAM
     Route: 058
     Dates: start: 20191006, end: 20191006
  6. G-LASTA [Suspect]
     Active Substance: PEGFILGRASTIM
     Dosage: 3.6 UNK
     Route: 058
     Dates: start: 20191116, end: 20191116
  7. DOCETAXEL. [Suspect]
     Active Substance: DOCETAXEL
     Indication: BREAST CANCER
     Dosage: 120 MILLIGRAM
     Route: 041
     Dates: start: 20191004, end: 20191004
  8. DEPAKENE-R [Concomitant]
     Active Substance: VALPROATE SODIUM
     Indication: PRODUCT USED FOR UNKNOWN INDICATION
     Dosage: UNK, BID (AFTER BREAKFAST AND DINNER)
     Route: 048
  9. REBAMIPIDE [Concomitant]
     Active Substance: REBAMIPIDE
     Indication: PAIN
     Dosage: UNK, TID (AFTER EACH MEAL)
     Route: 048
  10. REBAMIPIDE [Concomitant]
     Active Substance: REBAMIPIDE
     Dosage: UNK, AS NECESSARY (AT THE TIME OF PAIN)
     Route: 048
  11. LOPEMIN [LOPERAMIDE HYDROCHLORIDE] [Concomitant]
     Active Substance: LOPERAMIDE HYDROCHLORIDE
     Indication: DIARRHOEA
     Dosage: UNK UNK, AS NECESSARY
     Route: 048
  12. ENDOXAN [CYCLOPHOSPHAMIDE] [Concomitant]
     Active Substance: CYCLOPHOSPHAMIDE
     Dosage: 645 MILLIGRAM
     Route: 041
     Dates: start: 20191206, end: 20191206
  13. ATORVASTATIN [ATORVASTATIN CALCIUM] [Concomitant]
     Active Substance: ATORVASTATIN CALCIUM
     Indication: PRODUCT USED FOR UNKNOWN INDICATION
     Dosage: UNK, QD (AFTER DINNER)
     Route: 048
  14. MONTELUKAST [MONTELUKAST SODIUM] [Concomitant]
     Active Substance: MONTELUKAST SODIUM
     Indication: PRODUCT USED FOR UNKNOWN INDICATION
     Dosage: UNK, QD (AFTER DINNER)
     Route: 048
  15. ENDOXAN [CYCLOPHOSPHAMIDE] [Concomitant]
     Active Substance: CYCLOPHOSPHAMIDE
     Dosage: 975 MILLIGRAM
     Route: 041
     Dates: start: 20191025, end: 20191025
  16. DOCETAXEL. [Suspect]
     Active Substance: DOCETAXEL
     Dosage: 120 MILLIGRAM
     Route: 041
     Dates: start: 20191025, end: 20191025
  17. DOCETAXEL. [Suspect]
     Active Substance: DOCETAXEL
     Dosage: 100 MILLIGRAM
     Route: 041
     Dates: start: 20191115, end: 20191115
  18. ALOSENN [SENNOSIDE A+B] [Concomitant]
     Indication: CONSTIPATION
     Dosage: UNK UNK, AS NECESSARY
     Route: 048
  19. G-LASTA [Suspect]
     Active Substance: PEGFILGRASTIM
     Dosage: 3.6 UNK
     Route: 058
     Dates: start: 20191027, end: 20191027
  20. HERCEPTIN [Concomitant]
     Active Substance: TRASTUZUMAB
     Dosage: 380 MILLIGRAM
     Route: 041
     Dates: start: 20191206, end: 20191206
  21. ZOLPIDEM TARTRATE. [Concomitant]
     Active Substance: ZOLPIDEM TARTRATE
     Indication: PRODUCT USED FOR UNKNOWN INDICATION
     Dosage: UNK, QD (BEFORE SLEEP)
     Route: 048
  22. RIVOTRIL [Concomitant]
     Active Substance: CLONAZEPAM
     Indication: PRODUCT USED FOR UNKNOWN INDICATION
     Dosage: UNK, BID (AFTER BREAKFAST AND DINNER)
     Route: 048
  23. OLOPATADINE HYDROCHLORIDE. [Concomitant]
     Active Substance: OLOPATADINE HYDROCHLORIDE
     Indication: PRODUCT USED FOR UNKNOWN INDICATION
     Dosage: UNK, BID (AFTER BREAKFAST AND DINNER)
     Route: 048
  24. HERCEPTIN [Concomitant]
     Active Substance: TRASTUZUMAB
     Dosage: 380 MILLIGRAM
     Route: 041
     Dates: start: 20191025, end: 20191025
  25. HALCION [Concomitant]
     Active Substance: TRIAZOLAM
     Indication: PRODUCT USED FOR UNKNOWN INDICATION
     Dosage: UNK, QD (BEFORE SLEEP)
     Route: 048
  26. DONEPEZIL HYDROCHLORIDE. [Concomitant]
     Active Substance: DONEPEZIL HYDROCHLORIDE
     Indication: PRODUCT USED FOR UNKNOWN INDICATION
     Dosage: UNK, QD (AFTER BREAKFAST)
     Route: 048
  27. BIOFERMIN [BIFIDOBACTERIUM NOS] [Concomitant]
     Indication: PRODUCT USED FOR UNKNOWN INDICATION
     Dosage: UNK, TID (AFTER EACH MEAL)
     Route: 048
  28. BIOTIN [Concomitant]
     Active Substance: BIOTIN
     Indication: PRODUCT USED FOR UNKNOWN INDICATION
     Dosage: UNK, BID (AFTER BREAKFAST AND DINNER)
     Route: 048
  29. CARBOCISTEINE [Concomitant]
     Active Substance: CARBOCYSTEINE
     Indication: PRODUCT USED FOR UNKNOWN INDICATION
     Dosage: UNK, TID (AFTER EACH MEAL)
     Route: 048
  30. FEXOFENADINE HYDROCHLORIDE. [Concomitant]
     Active Substance: FEXOFENADINE HYDROCHLORIDE
     Indication: PRODUCT USED FOR UNKNOWN INDICATION
     Dosage: UNK, BID(AFTER BREAKFAST AND DINNER)
     Route: 048
  31. ENDOXAN [CYCLOPHOSPHAMIDE] [Concomitant]
     Active Substance: CYCLOPHOSPHAMIDE
     Indication: BREAST CANCER
     Dosage: 975 MILLIGRAM
     Route: 041
     Dates: start: 20191004, end: 20191004
  32. HERCEPTIN [Concomitant]
     Active Substance: TRASTUZUMAB
     Indication: BREAST CANCER
     Dosage: 510 MILLIGRAM
     Route: 041
     Dates: start: 20191004, end: 20191004
  33. HERCEPTIN [Concomitant]
     Active Substance: TRASTUZUMAB
     Dosage: 380 MILLIGRAM
     Route: 041
     Dates: start: 20191115, end: 20191115
  34. RABEPRAZOLE NA [Concomitant]
     Active Substance: RABEPRAZOLE SODIUM
     Indication: PRODUCT USED FOR UNKNOWN INDICATION
     Dosage: UNK, QD (AFTER DINNER)
     Route: 048
  35. TRAZODONE HYDROCHLORIDE. [Concomitant]
     Active Substance: TRAZODONE HYDROCHLORIDE
     Indication: PRODUCT USED FOR UNKNOWN INDICATION
     Dosage: UNK, QD (BEFORE SLEEP)
     Route: 048
  36. RIZE [CLOTIAZEPAM] [Concomitant]
     Active Substance: CLOTIAZEPAM
     Indication: PRODUCT USED FOR UNKNOWN INDICATION
     Dosage: UNK, TID (MORNING, AFTER LUNCH, BEFORE GOING TO BED)
     Route: 048
  37. OLANZAPINE. [Concomitant]
     Active Substance: OLANZAPINE
     Indication: PRODUCT USED FOR UNKNOWN INDICATION
     Dosage: UNK, QD (AFTER DINNER)
     Route: 048
  38. HOCHUEKKITO [Concomitant]
     Active Substance: HERBALS
     Indication: PRODUCT USED FOR UNKNOWN INDICATION
     Dosage: UNK, QD (BEFORE BREAKFAST)
     Route: 048

REACTIONS (2)
  - Febrile neutropenia [Recovered/Resolved]
  - Febrile neutropenia [Recovered/Resolved]

NARRATIVE: CASE EVENT DATE: 20191010
